FAERS Safety Report 21234458 (Version 1)
Quarter: 2022Q3

REPORT INFORMATION
  Report Type: Spontaneous
  Country: US (occurrence: US)
  Receive Date: 20220820
  Receipt Date: 20220820
  Transmission Date: 20221026
  Serious: No
  Sender: FDA-Public Use
  Company Number: US-AMGEN-USASP2022135763

PATIENT
  Age: 64 Year
  Sex: Male

DRUGS (4)
  1. RITUXIMAB [Suspect]
     Active Substance: RITUXIMAB
     Indication: Immunoglobulin G4 related disease
     Dosage: 1 GRAM, Q2WK FOR 2 DOSES
     Route: 065
  2. RITUXIMAB [Suspect]
     Active Substance: RITUXIMAB
     Indication: Lung disorder
  3. PREDNISONE [Concomitant]
     Active Substance: PREDNISONE
     Indication: Immunoglobulin G4 related disease
     Dosage: 40 MILLIGRAM, QD
     Route: 065
  4. PREDNISONE [Concomitant]
     Active Substance: PREDNISONE
     Indication: Lung disorder
     Dosage: 5 MILLIGRAM, QD
     Route: 065

REACTIONS (2)
  - Drug effective for unapproved indication [Unknown]
  - Off label use [Unknown]
